FAERS Safety Report 6749150-5 (Version None)
Quarter: 2010Q2

REPORT INFORMATION
  Report Type: 
  Country: None (occurrence: None)
  Receive Date: 20100601
  Receipt Date: 20100525
  Transmission Date: 20101027
  Serious: Yes (Death, Hospitalization)
  Sender: FDA-Public Use
  Company Number: JP-BAYER-201012109BYL

PATIENT
  Age: 61 Year
  Sex: Male

DRUGS (10)
  1. NEXAVAR [Suspect]
     Indication: HEPATIC NEOPLASM MALIGNANT
     Dosage: TOTAL DAILY DOSE: 800 MG  UNIT DOSE: 200 MG
     Route: 048
     Dates: start: 20100412, end: 20100415
  2. NEXAVAR [Suspect]
     Dosage: UNIT DOSE: 200 MG
     Route: 048
     Dates: start: 20100416, end: 20100422
  3. PARIET [Concomitant]
     Dosage: UNIT DOSE: 10 MG
     Route: 048
     Dates: start: 20100304
  4. URSO 250 [Concomitant]
     Dosage: UNIT DOSE: 100 MG
     Route: 048
     Dates: start: 20100304
  5. BARACLUDE [Concomitant]
     Dosage: UNIT DOSE: 0.5 MG
     Route: 048
     Dates: start: 20100304
  6. MAGLAX [Concomitant]
     Dosage: UNIT DOSE: 500 MG
     Route: 048
     Dates: start: 20100304
  7. DAI-KENCHU-TO [Concomitant]
     Dosage: UNIT DOSE: 2.5 G
     Route: 048
     Dates: start: 20100304
  8. NEOPHAGEN C [Concomitant]
     Route: 042
     Dates: start: 20100412, end: 20100430
  9. ADELAVIN-NO.9 [Concomitant]
     Route: 042
     Dates: start: 20100416, end: 20100430
  10. FARMORUBICIN [Concomitant]
     Indication: HEPATIC NEOPLASM MALIGNANT
     Route: 013
     Dates: start: 20100309

REACTIONS (4)
  - ASCITES [None]
  - HEPATIC NEOPLASM MALIGNANT [None]
  - LIVER DISORDER [None]
  - PYREXIA [None]
